FAERS Safety Report 4832313-3 (Version None)
Quarter: 2005Q4

REPORT INFORMATION
  Report Type: 
  Country: None (occurrence: None)
  Receive Date: 20051116
  Receipt Date: 20051116
  Transmission Date: 20060501
  Serious: Yes (Life-Threatening)
  Sender: FDA-Public Use
  Company Number: None

PATIENT
  Sex: Female
  Weight: 59.8748 kg

DRUGS (1)
  1. ADAVENT [Suspect]
     Indication: PARANOIA
     Dosage: 3-4 PILLS  1 -2 A DAY
     Dates: start: 20050910, end: 20051010

REACTIONS (1)
  - SALIVARY HYPERSECRETION [None]
